FAERS Safety Report 4423070-3 (Version None)
Quarter: 2004Q3

REPORT INFORMATION
  Report Type: 
  Country: None (occurrence: None)
  Receive Date: 20040806
  Receipt Date: 20040727
  Transmission Date: 20050211
  Serious: Yes (Hospitalization)
  Sender: FDA-Public Use
  Company Number: GB-JNJFOC-20040707236

PATIENT
  Age: 57 Year
  Sex: Female

DRUGS (4)
  1. REMICADE [Suspect]
     Indication: RHEUMATOID ARTHRITIS
     Dosage: 250 MG, INTRAVENOUS
     Route: 042
     Dates: start: 20030414, end: 20040225
  2. ACETAMINOPHEN [Concomitant]
  3. METHOTREXATE [Concomitant]
  4. LANSOPRAZOLE [Concomitant]

REACTIONS (2)
  - ADVERSE DRUG REACTION [None]
  - INFECTION [None]
